FAERS Safety Report 5334528-7 (Version None)
Quarter: 2007Q2

REPORT INFORMATION
  Report Type: 
  Country: None (occurrence: None)
  Receive Date: 20070522
  Receipt Date: 20070516
  Transmission Date: 20071010
  Serious: Yes (Death)
  Sender: FDA-Public Use
  Company Number: 200705IM000200

PATIENT
  Age: 58 Year
  Sex: Male

DRUGS (1)
  1. ACTIMMUNE [Suspect]
     Dosage: 50 UG, TIW, SUBCUTANEOUS
     Route: 058
     Dates: start: 20060816, end: 20070418

REACTIONS (2)
  - MULTIPLE INJURIES [None]
  - ROAD TRAFFIC ACCIDENT [None]
